FAERS Safety Report 5131721-3 (Version None)
Quarter: 2006Q4

REPORT INFORMATION
  Report Type: 
  Country: None (occurrence: None)
  Receive Date: 20061016
  Receipt Date: 20061002
  Transmission Date: 20070319
  Serious: Yes (Life-Threatening, Other)
  Sender: FDA-Public Use
  Company Number: 2006121082

PATIENT
  Age: 41 Year
  Sex: Male

DRUGS (4)
  1. CETIRIZINE                          (CETIRIZINE) [Suspect]
     Indication: SEASONAL ALLERGY
     Dosage: (10 MG); ORAL
     Route: 048
     Dates: start: 20060421, end: 20060422
  2. DICLOFENAC SODIUM [Concomitant]
  3. FLOXACILLIN SODIUM [Concomitant]
  4. METRONIDAZOLE [Concomitant]

REACTIONS (4)
  - CHEST PAIN [None]
  - DIZZINESS [None]
  - HYPERHIDROSIS [None]
  - PALPITATIONS [None]
